FAERS Safety Report 7512065-9 (Version None)
Quarter: 2011Q2

REPORT INFORMATION
  Report Type: 
  Country: None (occurrence: None)
  Receive Date: 20110520
  Receipt Date: 20110411
  Transmission Date: 20111010
  Serious: Yes (Hospitalization)
  Sender: FDA-Public Use
  Company Number: 2011SP016232

PATIENT
  Age: 31 Year
  Sex: Female

DRUGS (3)
  1. AMOXICILLIN [Concomitant]
  2. BETAMETHASONE [Suspect]
     Indication: TOCOLYSIS
  3. NIFIDEPINE (OTHER MFR) (NIEFIPINE /00340701/) [Suspect]
     Indication: TOCOLYSIS
     Dosage: 20 MG; PO
     Route: 048

REACTIONS (13)
  - DYSPNOEA [None]
  - DRUG EXPOSURE DURING PREGNANCY [None]
  - PREMATURE DELIVERY [None]
  - CYANOSIS [None]
  - OEDEMA PERIPHERAL [None]
  - RESPIRATORY DISTRESS [None]
  - BREATH SOUNDS ABNORMAL [None]
  - METABOLIC ALKALOSIS [None]
  - HYPOXIA [None]
  - VENOUS PRESSURE JUGULAR INCREASED [None]
  - RIGHT VENTRICULAR HEAVE [None]
  - METABOLIC ACIDOSIS [None]
  - HEART RATE INCREASED [None]
